FAERS Safety Report 7302609-4 (Version None)
Quarter: 2011Q1

REPORT INFORMATION
  Report Type: 
  Country: None (occurrence: None)
  Receive Date: 20110218
  Receipt Date: 20110214
  Transmission Date: 20110831
  Serious: Yes (Death, Hospitalization, Other)
  Sender: FDA-Public Use
  Company Number: BR-ABBOTT-10P-020-0635098-00

PATIENT
  Sex: Female
  Weight: 53 kg

DRUGS (6)
  1. FOLIC ACID [Concomitant]
     Indication: VITAMIN SUPPLEMENTATION
     Dosage: 5 MG EVERY WEEK
     Route: 048
  2. HYDROXYCHLOROQUINE SULFATE [Concomitant]
     Indication: RHEUMATOID ARTHRITIS
     Dosage: 2- 400 MG EVERY WEEK
     Route: 048
     Dates: start: 20020101, end: 20080101
  3. HUMIRA [Suspect]
     Indication: RHEUMATOID ARTHRITIS
     Route: 058
     Dates: start: 20020101, end: 20100401
  4. METOTREXATE [Concomitant]
     Indication: RHEUMATOID ARTHRITIS
     Route: 048
     Dates: start: 20080101
  5. IBUPROFEN [Concomitant]
     Indication: PAIN
  6. TYLEX [Concomitant]
     Indication: PAIN
     Route: 048

REACTIONS (6)
  - DECREASED APPETITE [None]
  - MALIGNANT NEOPLASM OF THORAX [None]
  - CHEST WALL MASS [None]
  - WEIGHT DECREASED [None]
  - MUSCULOSKELETAL CHEST PAIN [None]
  - GENERAL PHYSICAL HEALTH DETERIORATION [None]
